FAERS Safety Report 17689634 (Version 1)
Quarter: 2020Q2

REPORT INFORMATION
  Report Type: Report from Study
  Country: US (occurrence: US)
  Receive Date: 20200421
  Receipt Date: 20200421
  Transmission Date: 20200714
  Serious: No
  Sender: FDA-Public Use
  Company Number: NVSC2020US103354

PATIENT
  Sex: Male

DRUGS (1)
  1. ENTRESTO [Suspect]
     Active Substance: SACUBITRIL\VALSARTAN
     Indication: CARDIAC FAILURE CONGESTIVE
     Dosage: 24 MG
     Route: 048

REACTIONS (6)
  - Memory impairment [Unknown]
  - Dyspnoea [Recovering/Resolving]
  - Blood glucose increased [Unknown]
  - Insomnia [Unknown]
  - Distractibility [Unknown]
  - Incorrect dosage administered [Unknown]
